FAERS Safety Report 4642662-X (Version None)
Quarter: 2005Q2

REPORT INFORMATION
  Report Type: 
  Country: None (occurrence: None)
  Receive Date: 20050422
  Receipt Date: 20050413
  Transmission Date: 20051028
  Serious: Yes (Death)
  Sender: FDA-Public Use
  Company Number: BE-JNJFOC-20050403634

PATIENT
  Sex: Female

DRUGS (11)
  1. SPORANOX [Suspect]
     Indication: INTERTRIGO
     Route: 049
  2. ZOCOR [Suspect]
     Indication: DRUG USE FOR UNKNOWN INDICATION
  3. KREDEX [Concomitant]
  4. PLAVIX [Concomitant]
  5. URGENIN [Concomitant]
  6. URGENIN [Concomitant]
  7. AMMONIA [Concomitant]
  8. CALSYNAR [Concomitant]
     Route: 058
  9. CACIT [Concomitant]
  10. CACIT [Concomitant]
  11. PRIMPERAN TAB [Concomitant]
     Route: 049

REACTIONS (4)
  - ARTHRALGIA [None]
  - DEATH [None]
  - INTERTRIGO [None]
  - RHABDOMYOLYSIS [None]
